FAERS Safety Report 23995872 (Version 1)
Quarter: 2024Q2

REPORT INFORMATION
  Report Type: Spontaneous
  Country: US (occurrence: US)
  Receive Date: 20240620
  Receipt Date: 20240620
  Transmission Date: 20240716
  Serious: No
  Sender: FDA-Public Use
  Company Number: US-VISTAPHARM-2024-US-032606

PATIENT
  Age: 78 Year
  Sex: Female
  Weight: 79.38 kg

DRUGS (15)
  1. SUCRALFATE ORAL SUSPENSION [Suspect]
     Active Substance: SUCRALFATE
     Indication: Gastric ulcer
     Dosage: 4 TIMES PER DAY FOR ULCER
     Route: 048
     Dates: start: 202309
  2. PANTOPRAZOLE [Concomitant]
     Active Substance: PANTOPRAZOLE
  3. ALBUTEROL [Concomitant]
     Active Substance: ALBUTEROL
  4. SPIRIVA [Concomitant]
     Active Substance: TIOTROPIUM BROMIDE MONOHYDRATE
  5. REPATHA [Concomitant]
     Active Substance: EVOLOCUMAB
  6. TYLENOL [Concomitant]
     Active Substance: ACETAMINOPHEN
  7. OXYGEN [Concomitant]
     Active Substance: OXYGEN
  8. VERAPAMIL [Concomitant]
     Active Substance: VERAPAMIL HYDROCHLORIDE
  9. LEVOTHYROXINE [Concomitant]
     Active Substance: LEVOTHYROXINE\LEVOTHYROXINE SODIUM
  10. LEXAPRO [Concomitant]
     Active Substance: ESCITALOPRAM OXALATE
  11. XANAX [Concomitant]
     Active Substance: ALPRAZOLAM
  12. VITAMIN D [Concomitant]
     Active Substance: VITAMIN D NOS
  13. LORATADINE [Concomitant]
     Active Substance: LORATADINE
  14. PLAVIX [Concomitant]
     Active Substance: CLOPIDOGREL BISULFATE
  15. VITAMIN B [Concomitant]
     Active Substance: VITAMIN B

REACTIONS (2)
  - Flushing [Not Recovered/Not Resolved]
  - Rash [Not Recovered/Not Resolved]

NARRATIVE: CASE EVENT DATE: 20240603
